FAERS Safety Report 18093113 (Version 1)
Quarter: 2020Q3

REPORT INFORMATION
  Report Type: Spontaneous
  Country: MX (occurrence: MX)
  Receive Date: 20200730
  Receipt Date: 20200730
  Transmission Date: 20201103
  Serious: Yes (Death)
  Sender: FDA-Public Use
  Company Number: MX-BAYER-2020-149860

PATIENT
  Sex: Female

DRUGS (1)
  1. NEXAVAR [Suspect]
     Active Substance: SORAFENIB
     Dosage: 400 MG, BID
     Route: 048
     Dates: start: 20200518, end: 20200614

REACTIONS (3)
  - Borderline mental impairment [None]
  - Blister [None]
  - Death [Fatal]
